FAERS Safety Report 7066557-X (Version None)
Quarter: 2010Q4

REPORT INFORMATION
  Report Type: 
  Country: None (occurrence: None)
  Receive Date: 20101027
  Receipt Date: 20100316
  Transmission Date: 20110411
  Serious: No
  Sender: FDA-Public Use
  Company Number: US-WYE-H14210310

PATIENT
  Sex: Female
  Weight: 55.84 kg

DRUGS (3)
  1. PREMPRO [Suspect]
     Indication: ANGER
     Dosage: 0.45/1.5 MG DAILY, THEN REDUCED TO ONE TABLET EVERY OTHER DAY; THEN REDUCED TO 0.3/1.5MG
     Route: 048
  2. PREMPRO [Suspect]
     Indication: HOT FLUSH
  3. ACTONEL [Concomitant]

REACTIONS (4)
  - CHEST DISCOMFORT [None]
  - CHEST PAIN [None]
  - DRUG INEFFECTIVE [None]
  - INCORRECT DOSE ADMINISTERED [None]
